FAERS Safety Report 5502044-5 (Version None)
Quarter: 2007Q4

REPORT INFORMATION
  Report Type: 
  Country: None (occurrence: None)
  Receive Date: 20071030
  Receipt Date: 20070222
  Transmission Date: 20080405
  Serious: No
  Sender: FDA-Public Use
  Company Number: A0640589A

PATIENT
  Age: 46 Year
  Sex: Female

DRUGS (8)
  1. IMITREX [Suspect]
     Indication: MIGRAINE
     Dosage: 20MG AS REQUIRED
     Route: 045
     Dates: start: 20070118, end: 20070210
  2. DILANTIN [Concomitant]
  3. FELBATOL [Concomitant]
  4. CLORAZEPATE DIPOT [Concomitant]
  5. KEPPRA [Concomitant]
  6. PROMETHAZINE [Concomitant]
  7. METANX [Concomitant]
  8. VITAMIN CAP [Concomitant]

REACTIONS (1)
  - DRUG INEFFECTIVE [None]
